FAERS Safety Report 11048175 (Version 2)
Quarter: 2015Q2

REPORT INFORMATION
  Report Type: Report from Study
  Country: US (occurrence: US)
  Receive Date: 20150420
  Receipt Date: 20150504
  Transmission Date: 20150821
  Serious: Yes (Death)
  Sender: FDA-Public Use
  Company Number: US-ACTELION-A-US2015-116282

PATIENT
  Age: 80 Year
  Sex: Female

DRUGS (9)
  1. BUMEX [Concomitant]
     Active Substance: BUMETANIDE
  2. LEVOTHYROXINE [Concomitant]
     Active Substance: LEVOTHYROXINE
  3. AMIODARONE [Concomitant]
     Active Substance: AMIODARONE
  4. TRACLEER [Suspect]
     Active Substance: BOSENTAN\BOSENTAN MONOHYDRATE
     Indication: PULMONARY HYPERTENSION
     Dosage: 62.5 MG, BID
     Route: 048
     Dates: start: 20120423
  5. TRACLEER [Suspect]
     Active Substance: BOSENTAN\BOSENTAN MONOHYDRATE
     Dosage: 125 MG, BID
     Route: 048
     Dates: end: 20150311
  6. RIOCIGUAT [Concomitant]
     Active Substance: RIOCIGUAT
  7. IRON [Concomitant]
     Active Substance: IRON
  8. ASA [Concomitant]
     Active Substance: ASPIRIN
  9. COREG [Concomitant]
     Active Substance: CARVEDILOL

REACTIONS (3)
  - Pericardial effusion [Fatal]
  - Dyspnoea [Fatal]
  - Multi-organ failure [Fatal]

NARRATIVE: CASE EVENT DATE: 20150311
